FAERS Safety Report 8506902-9 (Version None)
Quarter: 2012Q3

REPORT INFORMATION
  Report Type: 
  Country: None (occurrence: None)
  Receive Date: 20120712
  Receipt Date: 20120601
  Transmission Date: 20120928
  Serious: Yes (Death)
  Sender: FDA-Public Use
  Company Number: NO-009507513-1207NOR000877

PATIENT

DRUGS (7)
  1. PLAVIX [Suspect]
     Indication: ACUTE MYOCARDIAL INFARCTION
     Dosage: 600 MG, UNK
     Route: 048
     Dates: start: 20120407, end: 20120407
  2. TITRALAC (CALCIUM CARBONATE (+) GLYCINE) [Concomitant]
  3. HEPARIN [Suspect]
     Indication: ACUTE MYOCARDIAL INFARCTION
     Dosage: 5000 IU, UNK
     Dates: start: 20120407
  4. CALCIGRAN FORTE [Concomitant]
  5. INTEGRILIN [Suspect]
     Indication: ACUTE MYOCARDIAL INFARCTION
     Dosage: UNK
     Route: 042
     Dates: start: 20120407, end: 20120408
  6. ASPIRIN [Suspect]
     Indication: ACUTE MYOCARDIAL INFARCTION
     Dosage: 300 MG, UNK
     Route: 048
     Dates: start: 20120407, end: 20120407
  7. ALENDRONATE SODIUM [Concomitant]

REACTIONS (1)
  - PULMONARY HAEMORRHAGE [None]
